FAERS Safety Report 9456173 (Version 1)
Quarter: 2013Q3

REPORT INFORMATION
  Report Type: Spontaneous
  Country: CA (occurrence: CA)
  Receive Date: 20130813
  Receipt Date: 20130813
  Transmission Date: 20140515
  Serious: Yes (Hospitalization)
  Sender: FDA-Public Use
  Company Number: CA-BAXTER-2013BAX030785

PATIENT
  Age: 60 Year
  Sex: Male

DRUGS (4)
  1. DIANEAL PD4 SOLUTION WITH 1.5% DEXTROSE AND 2.5 MEQ/L CALCIUM [Suspect]
     Indication: RENAL FAILURE
     Route: 033
     Dates: start: 20130422, end: 201306
  2. DIANEAL PD4 SOLUTION WITH 1.5% DEXTROSE AND 2.5 MEQ/L CALCIUM [Suspect]
     Route: 033
     Dates: start: 20130620
  3. EXTRANEAL [Suspect]
     Indication: RENAL FAILURE
     Route: 033
     Dates: start: 20130422, end: 201306
  4. EXTRANEAL [Suspect]
     Route: 033
     Dates: start: 20130620

REACTIONS (5)
  - Malaise [Recovering/Resolving]
  - Confusional state [Recovering/Resolving]
  - Electrolyte imbalance [Recovering/Resolving]
  - Blood sodium decreased [Recovering/Resolving]
  - Diarrhoea [Not Recovered/Not Resolved]
